FAERS Safety Report 7207192-X (Version None)
Quarter: 2011Q1

REPORT INFORMATION
  Report Type: 
  Country: None (occurrence: None)
  Receive Date: 20110103
  Receipt Date: 20101223
  Transmission Date: 20110831
  Serious: Yes (Other)
  Sender: FDA-Public Use
  Company Number: US-ELI_LILLY_AND_COMPANY-US201012005916

PATIENT
  Sex: Female

DRUGS (3)
  1. FORTEO [Suspect]
     Indication: OSTEOPENIA
     Dosage: 20 UG, DAILY (1/D)
  2. OSCAL [Concomitant]
  3. SYNTHROID [Concomitant]

REACTIONS (3)
  - OFF LABEL USE [None]
  - BREAST CANCER IN SITU [None]
  - BREAST DISCHARGE [None]
